FAERS Safety Report 9621636 (Version 1)
Quarter: 2013Q4

REPORT INFORMATION
  Report Type: Spontaneous
  Country: US (occurrence: US)
  Receive Date: 20131015
  Receipt Date: 20131015
  Transmission Date: 20140711
  Serious: Yes (Hospitalization)
  Sender: FDA-Public Use
  Company Number: US-VERTEX PHARMACEUTICALS INC-2013-010319

PATIENT
  Age: 51 Year
  Sex: Male
  Weight: 92.63 kg

DRUGS (8)
  1. INCIVEK [Suspect]
     Indication: HEPATITIS C
     Dosage: UNK
     Dates: start: 20131007
  2. PEGASYS [Suspect]
     Indication: HEPATITIS C
     Dosage: UNK
     Dates: start: 20131007
  3. RIBAVIRIN [Suspect]
     Indication: HEPATITIS C
     Dosage: UNK
     Dates: start: 20131007
  4. NEXIUM [Concomitant]
     Indication: DYSPEPSIA
  5. METOPROLOL [Concomitant]
     Indication: BLOOD PRESSURE INCREASED
  6. PRAVASTATIN [Concomitant]
     Indication: BLOOD CHOLESTEROL INCREASED
  7. LORAZEPAM [Concomitant]
  8. BABY ASPIRIN [Concomitant]

REACTIONS (1)
  - Migraine [Unknown]
